FAERS Safety Report 5872226-1 (Version None)
Quarter: 2008Q3

REPORT INFORMATION
  Report Type: 
  Country: None (occurrence: None)
  Receive Date: 20080902
  Receipt Date: 20080122
  Transmission Date: 20090109
  Serious: Yes (Hospitalization)
  Sender: FDA-Public Use
  Company Number: 2008S1002970

PATIENT
  Age: 77 Year
  Sex: Male

DRUGS (6)
  1. PHOSPHOSODA FLAVOR NOT SPECIFIED (SODIUM PHOSPHATE DIBASIC/SODIUM PHO [Suspect]
     Indication: COLONOSCOPY
     Dosage: 44 ML, PO;  45 ML;169; PO
     Route: 048
     Dates: start: 20071024
  2. PHOSPHOSODA FLAVOR NOT SPECIFIED (SODIUM PHOSPHATE DIBASIC/SODIUM PHO [Suspect]
     Indication: COLONOSCOPY
     Dosage: 44 ML, PO;  45 ML;169; PO
     Route: 048
     Dates: start: 20071024
  3. PHOSPHOSODA FLAVOR NOT SPECIFIED (SODIUM PHOSPHATE DIBASIC/SODIUM PHO [Suspect]
     Indication: COLONOSCOPY
     Dosage: 44 ML, PO;  45 ML;169; PO
     Route: 048
     Dates: start: 20071025
  4. NEXIUM [Concomitant]
  5. AMOXICILLIN [Concomitant]
  6. CLARITHROMYCIN [Concomitant]

REACTIONS (2)
  - NEPHRITIS INTERSTITIAL [None]
  - RENAL FAILURE ACUTE [None]
